FAERS Safety Report 8577794-7 (Version None)
Quarter: 2012Q3

REPORT INFORMATION
  Report Type: 
  Country: None (occurrence: None)
  Receive Date: 20120808
  Receipt Date: 20120730
  Transmission Date: 20120928
  Serious: No
  Sender: FDA-Public Use
  Company Number: US-BIOGENIDEC-2011BI048995

PATIENT
  Age: 27 Year
  Sex: Female

DRUGS (1)
  1. TYSABRI [Suspect]
     Indication: MULTIPLE SCLEROSIS
     Route: 042
     Dates: start: 20111222, end: 20111222

REACTIONS (6)
  - HEADACHE [None]
  - PARAESTHESIA [None]
  - LETHARGY [None]
  - VISUAL ACUITY REDUCED [None]
  - NAUSEA [None]
  - MIGRAINE [None]
